FAERS Safety Report 14206716 (Version 5)
Quarter: 2019Q3

REPORT INFORMATION
  Report Type: Spontaneous
  Country: CA (occurrence: CA)
  Receive Date: 20171121
  Receipt Date: 20190816
  Transmission Date: 20191004
  Serious: Yes (Other)
  Sender: FDA-Public Use
  Company Number: CA-AUROBINDO-AUR-APL-2017-43607

PATIENT

DRUGS (2)
  1. ESBRIET [Interacting]
     Active Substance: PIRFENIDONE
     Indication: IDIOPATHIC PULMONARY FIBROSIS
     Dosage: 534 MG, 3 TIMES A DAY
     Route: 048
     Dates: start: 20170812
  2. AURO-MIRTAZAPINE 30MG FILM-COATED TABLETS [Suspect]
     Active Substance: MIRTAZAPINE
     Indication: INSOMNIA
     Dosage: 30 MILLIGRAM
     Route: 065
     Dates: start: 201710, end: 201710

REACTIONS (5)
  - Drug interaction [Not Recovered/Not Resolved]
  - Rash [Recovered/Resolved]
  - Erythema [Recovered/Resolved]
  - Pruritus [Recovered/Resolved]
  - Drug ineffective [Not Recovered/Not Resolved]

NARRATIVE: CASE EVENT DATE: 201710
